FAERS Safety Report 8708587 (Version 2)
Quarter: 2014Q2

REPORT INFORMATION
  Report Type: Report from Study
  Country: US (occurrence: US)
  Receive Date: 20120806
  Receipt Date: 20140529
  Transmission Date: 20141212
  Serious: Yes (Other)
  Sender: FDA-Public Use
  Company Number: US-US-EMD SERONO, INC.-7151395

PATIENT
  Sex: Male

DRUGS (2)
  1. REBIF [Suspect]
     Indication: MULTIPLE SCLEROSIS
     Route: 058
     Dates: start: 20100721, end: 201203
  2. AVONEX                             /05982701/ [Concomitant]
     Indication: MULTIPLE SCLEROSIS
     Dates: start: 19990305

REACTIONS (1)
  - Coronary artery occlusion [Unknown]
